FAERS Safety Report 6773618-9 (Version None)
Quarter: 2010Q2

REPORT INFORMATION
  Report Type: 
  Country: None (occurrence: None)
  Receive Date: 20100614
  Receipt Date: 20100525
  Transmission Date: 20101027
  Serious: Yes (Hospitalization)
  Sender: FDA-Public Use
  Company Number: 1000014424

PATIENT
  Age: 51 Year
  Sex: Male

DRUGS (3)
  1. CAMPRAL [Suspect]
     Indication: ALCOHOLISM
     Dosage: 999 MG (333 MG, 3 IN 1 D), ORAL
     Route: 048
     Dates: start: 20100505, end: 20100509
  2. METADON [Concomitant]
  3. NEXIUM [Concomitant]

REACTIONS (2)
  - CEREBELLAR INFARCTION [None]
  - CEREBROVASCULAR ACCIDENT [None]
